FAERS Safety Report 7956367-0 (Version None)
Quarter: 2011Q4

REPORT INFORMATION
  Report Type: 
  Country: None (occurrence: None)
  Receive Date: 20111205
  Receipt Date: 20111129
  Transmission Date: 20120403
  Serious: Yes (Life-Threatening)
  Sender: FDA-Public Use
  Company Number: JP-PFIZER INC-2011290149

PATIENT
  Age: 62 Year
  Sex: Male
  Weight: 70 kg

DRUGS (31)
  1. SUNITINIB MALATE [Suspect]
     Dosage: 25 MG, 1X/DAY
     Route: 048
     Dates: start: 20081007, end: 20081016
  2. SUNITINIB MALATE [Suspect]
     Dosage: 37.5 MG, 1X/DAY
     Route: 048
     Dates: start: 20090529, end: 20090602
  3. DASEN [Concomitant]
     Dosage: 5 MG, 3X/DAY
     Route: 048
     Dates: start: 20091227, end: 20100111
  4. SUNITINIB MALATE [Suspect]
     Dosage: 50 MG, 1X/DAY
     Route: 048
     Dates: start: 20090109, end: 20090122
  5. SUNITINIB MALATE [Suspect]
     Dosage: 50 MG, 1X/DAY
     Route: 048
     Dates: start: 20090512, end: 20090528
  6. SUNITINIB MALATE [Suspect]
     Dosage: 37.5 MG, 1X/DAY
     Route: 048
     Dates: start: 20090724, end: 20090728
  7. SUNITINIB MALATE [Suspect]
     Dosage: 50 MG, 1X/DAY
     Route: 048
     Dates: start: 20091117, end: 20091208
  8. DORIPENEM MONOHYDRATE [Concomitant]
     Dosage: 0.25 G, 3X/DAY
     Route: 042
     Dates: start: 20091214, end: 20091224
  9. MUCOSOLVAN [Concomitant]
     Dosage: 15 MG, 3X/DAY
     Route: 048
     Dates: start: 20091227, end: 20100413
  10. CLARITHROMYCIN [Concomitant]
     Dosage: 200 MG, 1X/DAY
     Route: 048
     Dates: start: 20100105, end: 20100413
  11. SUNITINIB MALATE [Suspect]
     Indication: RENAL CELL CARCINOMA
     Dosage: 50 MG, 1X/DAY
     Route: 048
     Dates: start: 20080718, end: 20080810
  12. SUNITINIB MALATE [Suspect]
     Dosage: 50 MG, 1X/DAY
     Route: 048
     Dates: start: 20080902, end: 20080915
  13. SUNITINIB MALATE [Suspect]
     Dosage: 50 MG, 1X/DAY
     Route: 048
     Dates: start: 20090703, end: 20090723
  14. SUNITINIB MALATE [Suspect]
     Dosage: 50 MG, 1X/DAY
     Route: 048
     Dates: start: 20091009, end: 20091020
  15. SUNITINIB MALATE [Suspect]
     Dosage: 50 MG, 1X/DAY
     Route: 048
     Dates: start: 20100105, end: 20100119
  16. NORVASC [Concomitant]
     Dosage: 2.5 MG, 1X/DAY
     Route: 048
     Dates: start: 20080801
  17. LEVOTHYROXINE SODIUM [Concomitant]
     Dosage: 25 UG, 1X/DAY
     Route: 048
     Dates: start: 20100105
  18. LEVOFLOXACIN [Concomitant]
     Dosage: 500 MG, 1X/DAY
     Route: 048
     Dates: start: 20091212, end: 20091213
  19. SUNITINIB MALATE [Suspect]
     Dosage: 37.5 MG, 1X/DAY
     Route: 048
     Dates: start: 20090915, end: 20090918
  20. SUNITINIB MALATE [Suspect]
     Dosage: 37.5 MG, 1X/DAY
     Route: 048
     Dates: start: 20091021, end: 20091030
  21. BETAMETHASONE [Concomitant]
     Dosage: 2 DF, 2X/DAY
     Route: 048
     Dates: start: 20090109
  22. FLOMOX [Concomitant]
     Dosage: 100 MG, 3X/DAY
     Route: 048
     Dates: start: 20091225, end: 20091231
  23. SUNITINIB MALATE [Suspect]
     Dosage: 37.5 MG, 1X/DAY
     Route: 048
     Dates: start: 20090123, end: 20090130
  24. SUNITINIB MALATE [Suspect]
     Dosage: 50 MG, 1X/DAY
     Route: 048
     Dates: start: 20090405, end: 20090428
  25. SUNITINIB MALATE [Suspect]
     Dosage: 50 MG, 1X/DAY
     Route: 048
     Dates: start: 20100212, end: 20100226
  26. FLUNASE [Concomitant]
     Dosage: 10 DF, 1X/DAY
     Dates: start: 20100105, end: 20100329
  27. SUNITINIB MALATE [Suspect]
     Dosage: 37.5 MG, 1X/DAY
     Route: 048
     Dates: start: 20100120, end: 20100122
  28. SUNITINIB MALATE [Suspect]
     Dosage: 50 MG, 1X/DAY
     Route: 048
     Dates: start: 20100312, end: 20100402
  29. BETAMETHASONE [Concomitant]
     Indication: BRAIN OEDEMA
     Dosage: 0.5 MG, 2X/DAY
     Route: 048
     Dates: start: 20080725
  30. SUNITINIB MALATE [Suspect]
     Dosage: 37.5 MG, 1X/DAY
     Route: 048
     Dates: start: 20090220, end: 20090319
  31. SUNITINIB MALATE [Suspect]
     Dosage: 50 MG, 1X/DAY
     Route: 048
     Dates: start: 20090825, end: 20090914

REACTIONS (1)
  - SINUSITIS [None]
